FAERS Safety Report 12840263 (Version 1)
Quarter: 2016Q4

REPORT INFORMATION
  Report Type: Spontaneous
  Country: CH (occurrence: BR)
  Receive Date: 20161012
  Receipt Date: 20161012
  Transmission Date: 20170207
  Serious: Yes (Hospitalization, Disabling)
  Sender: FDA-Public Use
  Company Number: CH-LPDUSPRD-20160896

PATIENT
  Age: 88 Year
  Sex: Female
  Weight: 88 kg

DRUGS (1)
  1. FERINJECT [Suspect]
     Active Substance: FERRIC CARBOXYMALTOSE
     Dosage: 2 AMPOULES MONTHLY
     Route: 042
     Dates: end: 20160722

REACTIONS (3)
  - Fall [Recovered/Resolved with Sequelae]
  - Bedridden [Recovered/Resolved with Sequelae]
  - Surgery [Recovered/Resolved with Sequelae]

NARRATIVE: CASE EVENT DATE: 20160720
